FAERS Safety Report 7948748-6 (Version None)
Quarter: 2011Q4

REPORT INFORMATION
  Report Type: 
  Country: None (occurrence: None)
  Receive Date: 20111130
  Receipt Date: 20111116
  Transmission Date: 20120403
  Serious: Yes (Disabling)
  Sender: FDA-Public Use
  Company Number: US-BAUSCH-2011BL008060

PATIENT
  Sex: Male

DRUGS (1)
  1. LOTEMAX [Suspect]
     Indication: ATOPIC KERATOCONJUNCTIVITIS

REACTIONS (2)
  - GLAUCOMA [None]
  - BLINDNESS [None]
